FAERS Safety Report 14202817 (Version 2)
Quarter: 2017Q4

REPORT INFORMATION
  Report Type: Spontaneous
  Country: AU (occurrence: AU)
  Receive Date: 20171119
  Receipt Date: 20171128
  Transmission Date: 20180321
  Serious: Yes (Other)
  Sender: FDA-Public Use
  Company Number: AU-AMGEN-AUSSP2017170759

PATIENT
  Age: 33 Year
  Sex: Female

DRUGS (2)
  1. ARANESP [Suspect]
     Active Substance: DARBEPOETIN ALFA
     Indication: NEPHROGENIC ANAEMIA
     Dosage: 80 MCG, QWK
     Route: 065
     Dates: start: 20170723
  2. ARANESP [Suspect]
     Active Substance: DARBEPOETIN ALFA
     Dosage: 100 MCG, QWK
     Route: 065
     Dates: start: 201709

REACTIONS (2)
  - Haemoglobin decreased [Not Recovered/Not Resolved]
  - Gastric mucosal lesion [Unknown]

NARRATIVE: CASE EVENT DATE: 2017
